FAERS Safety Report 4646066-5 (Version None)
Quarter: 2005Q2

REPORT INFORMATION
  Report Type: 
  Country: None (occurrence: None)
  Receive Date: 20050425
  Receipt Date: 20050413
  Transmission Date: 20051028
  Serious: Yes (Hospitalization)
  Sender: FDA-Public Use
  Company Number: HQWYE033915APR05

PATIENT
  Age: 49 Year
  Sex: Female

DRUGS (4)
  1. RAPAMUNE [Suspect]
     Indication: PANCREAS ISLET CELL TRANSPLANT
     Dosage: SEE IMAGE
     Route: 048
     Dates: start: 20010421, end: 20010101
  2. RAPAMUNE [Suspect]
     Indication: PANCREAS ISLET CELL TRANSPLANT
     Dosage: SEE IMAGE
     Route: 048
     Dates: start: 20010101, end: 20020101
  3. INSULIN [Concomitant]
  4. VERAPAMIL [Concomitant]

REACTIONS (7)
  - ABDOMINAL MASS [None]
  - APHTHOUS STOMATITIS [None]
  - DIARRHOEA [None]
  - ILEAL ULCER [None]
  - LYMPHOPROLIFERATIVE DISORDER [None]
  - NAUSEA [None]
  - VOMITING [None]
